FAERS Safety Report 6590192-0 (Version None)
Quarter: 2010Q1

REPORT INFORMATION
  Report Type: 
  Country: None (occurrence: None)
  Receive Date: 20100219
  Receipt Date: 20100212
  Transmission Date: 20100710
  Serious: Yes (Other)
  Sender: FDA-Public Use
  Company Number: US-SANOFI-AVENTIS-2009SA010017

PATIENT
  Age: 78 Year
  Sex: Female

DRUGS (1)
  1. MULTAQ [Suspect]
     Route: 048
     Dates: start: 20090101

REACTIONS (2)
  - ATRIAL FIBRILLATION [None]
  - DRUG ADMINISTRATION ERROR [None]
